FAERS Safety Report 18001010 (Version 3)
Quarter: 2020Q3

REPORT INFORMATION
  Report Type: Spontaneous
  Country: US (occurrence: US)
  Receive Date: 20200709
  Receipt Date: 20200910
  Transmission Date: 20201103
  Serious: Yes (Disabling, Other)
  Sender: FDA-Public Use
  Company Number: US-TEVA-2020-US-1798044

PATIENT
  Sex: Male

DRUGS (21)
  1. OXYCODONE [Suspect]
     Active Substance: OXYCODONE
     Dosage: 60 MILLIGRAM DAILY;
     Route: 065
  2. OXYCONTIN [Suspect]
     Active Substance: OXYCODONE HYDROCHLORIDE
     Indication: SPINAL PAIN
  3. VICODIN [Suspect]
     Active Substance: ACETAMINOPHEN\HYDROCODONE BITARTRATE
     Route: 065
  4. HYDROCODONE [Suspect]
     Active Substance: HYDROCODONE
     Route: 065
  5. NALTREXONE [Suspect]
     Active Substance: NALTREXONE
     Route: 065
  6. MELOXICAM. [Suspect]
     Active Substance: MELOXICAM
     Route: 065
  7. METHADONE [Suspect]
     Active Substance: METHADONE HYDROCHLORIDE
     Route: 065
  8. HYDROCODONE/ACETAMINOPHEN [Suspect]
     Active Substance: ACETAMINOPHEN\HYDROCODONE
     Route: 065
  9. PERCOCET [Suspect]
     Active Substance: ACETAMINOPHEN\OXYCODONE HYDROCHLORIDE
     Route: 065
  10. GABAPENTIN. [Suspect]
     Active Substance: GABAPENTIN
     Route: 065
  11. MORPHINE [Suspect]
     Active Substance: MORPHINE
     Route: 065
  12. DULOXETINE. [Suspect]
     Active Substance: DULOXETINE
     Route: 065
  13. TIZANIDINE. [Suspect]
     Active Substance: TIZANIDINE
     Route: 065
  14. ROXICET [Suspect]
     Active Substance: ACETAMINOPHEN\OXYCODONE HYDROCHLORIDE
     Route: 065
  15. QX1 [Concomitant]
  16. QUETIAPINE. [Suspect]
     Active Substance: QUETIAPINE
     Route: 065
  17. NORCO [Suspect]
     Active Substance: ACETAMINOPHEN\HYDROCODONE BITARTRATE
     Route: 065
  18. OXYCONTIN [Suspect]
     Active Substance: OXYCODONE HYDROCHLORIDE
     Indication: BACK PAIN
     Dosage: 80 MILLIGRAM DAILY;
     Route: 065
  19. CODEINE [Suspect]
     Active Substance: CODEINE
     Route: 065
  20. PRAZOSIN. [Suspect]
     Active Substance: PRAZOSIN
     Route: 065
  21. DIGOXIN. [Suspect]
     Active Substance: DIGOXIN
     Route: 065

REACTIONS (17)
  - Tremor [Unknown]
  - Constipation [Unknown]
  - Inflammatory bowel disease [Unknown]
  - Pain [Unknown]
  - Palpitations [Unknown]
  - Amnesia [Not Recovered/Not Resolved]
  - Hemiparesis [Not Recovered/Not Resolved]
  - Sensory loss [Not Recovered/Not Resolved]
  - Physical disability [Not Recovered/Not Resolved]
  - Abdominal pain [Unknown]
  - Large intestine polyp [Unknown]
  - Colitis ulcerative [Unknown]
  - Gastrointestinal pain [Not Recovered/Not Resolved]
  - Drug dependence [Unknown]
  - Diarrhoea [Recovered/Resolved]
  - Anal haemorrhage [Unknown]
  - Bowel movement irregularity [Unknown]
